FAERS Safety Report 5346023-X (Version None)
Quarter: 2007Q2

REPORT INFORMATION
  Report Type: 
  Country: None (occurrence: None)
  Receive Date: 20070430
  Receipt Date: 20070313
  Transmission Date: 20071010
  Serious: No
  Sender: FDA-Public Use
  Company Number: 261851

PATIENT
  Age: 76 Year
  Sex: Female
  Weight: 82.1 kg

DRUGS (2)
  1. LEVEMIR [Suspect]
     Indication: INSULIN-REQUIRING TYPE II DIABETES MELLITUS
     Dosage: 37 IU, BID, SUBCUTANEOUS
     Route: 058
     Dates: start: 20070201
  2. NOVOFINE(R) 30 (NEEDLE) [Concomitant]

REACTIONS (2)
  - INJECTION SITE PAIN [None]
  - INJECTION SITE REACTION [None]
